FAERS Safety Report 16997469 (Version 1)
Quarter: 2019Q4

REPORT INFORMATION
  Report Type: Spontaneous
  Country: GB (occurrence: GB)
  Receive Date: 20191106
  Receipt Date: 20191106
  Transmission Date: 20200122
  Serious: Yes (Disabling)
  Sender: FDA-Public Use
  Company Number: GB-TEVA-2019-GB-1131125

PATIENT
  Age: 78 Year
  Sex: Female
  Weight: 102 kg

DRUGS (8)
  1. TRIMETHOPRIM. [Concomitant]
     Active Substance: TRIMETHOPRIM
     Dosage: 2 DOSAGE FORMS PER DAY
     Dates: start: 20191008
  2. AMLODIPINE [Concomitant]
     Active Substance: AMLODIPINE BESYLATE
     Dosage: 1 DOSAGE FORM PER DAY
     Dates: start: 20151113
  3. LEVOTHYROXINE. [Concomitant]
     Active Substance: LEVOTHYROXINE
     Dosage: 1 DOSAGE FORM PER DAY
     Dates: start: 20180924
  4. PARACETAMOL [Concomitant]
     Active Substance: ACETAMINOPHEN
     Dosage: 8 DOSAGE FORMS PER DAY
     Dates: start: 20180924
  5. ATENOLOL. [Concomitant]
     Active Substance: ATENOLOL
     Dosage: 2 DOSAGE FORM PER DAY
     Dates: start: 20180924
  6. ATORVASTATIN [Concomitant]
     Active Substance: ATORVASTATIN
     Dosage: 1 DOSAGE FORM PER DAY
     Dates: start: 20180924
  7. ESTRIOL [Concomitant]
     Active Substance: ESTRIOL
     Dosage: APPLY AT NIGHT FOR ABOUT 3WEEKS THEN ABOUT X2 O...
     Dates: start: 20180924
  8. NITROFURANTOIN. [Suspect]
     Active Substance: NITROFURANTOIN
     Dosage: 200 MILLIGRAM PER DAY
     Dates: start: 20191001, end: 20191006

REACTIONS (2)
  - Mental disorder [Unknown]
  - Decreased appetite [Recovered/Resolved]

NARRATIVE: CASE EVENT DATE: 20191008
